FAERS Safety Report 9718170 (Version 2)
Quarter: 2013Q4

REPORT INFORMATION
  Report Type: Not Available
  Country: US (occurrence: US)
  Receive Date: 20131125
  Receipt Date: 20131125
  Transmission Date: 20140711
  Serious: No
  Sender: FDA-Public Use
  Company Number: US-VIVUS-2013V1000532

PATIENT
  Age: 52 Year
  Sex: Female

DRUGS (11)
  1. QSYMIA 15MG/92MG [Suspect]
     Indication: WEIGHT DECREASED
     Dosage: STARTED AROUND 3 WEEKS AGO
     Route: 048
     Dates: start: 201307
  2. QSYMIA 11.25MG/69MG [Suspect]
     Indication: WEIGHT DECREASED
     Dosage: STARTED AFTER FINISHING ONE MONTH OF THE 7.5MG/46MG DOSE
     Route: 048
     Dates: start: 2013, end: 2013
  3. QSYMIA 7.5MG/46MG [Suspect]
     Indication: WEIGHT DECREASED
     Route: 048
     Dates: end: 2013
  4. QSYMIA 3.75MG/23MG [Suspect]
     Indication: WEIGHT DECREASED
     Route: 048
     Dates: start: 201302, end: 2013
  5. ALLEGRA [Concomitant]
     Indication: SEASONAL ALLERGY
     Dosage: STARTED AROUND 6 YEARS AGO
  6. METHOCARBAMOL [Concomitant]
     Indication: MUSCLE RELAXANT THERAPY
     Dosage: STARTED AROUND 12 YEARS AGO
  7. IBUPROFEN [Concomitant]
     Indication: BACK PAIN
     Dosage: STARTED AROUND 40 YEARS AGO
  8. LOSARTIN [Concomitant]
     Indication: BLOOD PRESSURE
     Dosage: STARTED AROUND 1 YEAR AGO
  9. TRAZODONE [Concomitant]
     Indication: INSOMNIA
     Dosage: 1/4 OR 1/2 OF A 50 MG TABLET; THE PATIENT REPORTED THAT SHE HAD NOT TAKEN IT SINCE STARTING QSYMIA
     Dates: start: 2008
  10. VICODIN [Concomitant]
     Indication: BACK PAIN
     Dosage: STARTED AROUND 12 YEARS AGO
  11. ATENOLOL [Concomitant]
     Indication: HEART RATE INCREASED
     Dosage: HAS ON HAND IF NEEDED
     Dates: start: 1996

REACTIONS (1)
  - Dry mouth [Not Recovered/Not Resolved]
